FAERS Safety Report 9383867 (Version 1)
Quarter: 2013Q3

REPORT INFORMATION
  Report Type: Spontaneous
  Country: US (occurrence: US)
  Receive Date: 20130704
  Receipt Date: 20130704
  Transmission Date: 20140515
  Serious: No
  Sender: FDA-Public Use
  Company Number: US-009507513-1306USA014013

PATIENT
  Age: 66 Year
  Sex: Female

DRUGS (6)
  1. FOSAMAX [Suspect]
     Indication: OSTEOPOROSIS
     Dosage: UNK
     Route: 048
     Dates: start: 2005, end: 2005
  2. OMEPRAZEN [Concomitant]
  3. ATENOL [Concomitant]
  4. HYDROCHLOROTHIAZIDE (+) TRIAMTERENE [Concomitant]
  5. PRAVASTATIN SODIUM [Concomitant]
  6. LEVOTHYROXINE SODIUM [Concomitant]

REACTIONS (1)
  - Influenza [Recovering/Resolving]
